FAERS Safety Report 16274519 (Version 1)
Quarter: 2019Q2

REPORT INFORMATION
  Report Type: Spontaneous
  Country: US (occurrence: US)
  Receive Date: 20190506
  Receipt Date: 20190506
  Transmission Date: 20190711
  Serious: Yes (Hospitalization)
  Sender: FDA-Public Use
  Company Number: US-BAYER-2019-086486

PATIENT
  Age: 76 Year
  Sex: Male
  Weight: 104 kg

DRUGS (13)
  1. HUMALOG [Concomitant]
     Active Substance: INSULIN LISPRO
     Dosage: UNK
     Dates: start: 20161128
  2. ELIQUIS [Interacting]
     Active Substance: APIXABAN
     Indication: PRODUCT USED FOR UNKNOWN INDICATION
     Dosage: 5 MG
     Route: 048
     Dates: start: 20190115, end: 20190311
  3. BAYER LOW DOSE [Interacting]
     Active Substance: ASPIRIN
     Indication: ATRIAL FLUTTER
     Dosage: 81 MG
     Route: 048
     Dates: start: 20090225, end: 20190311
  4. CLARITIN [Suspect]
     Active Substance: LORATADINE
     Dosage: UNK
     Dates: start: 201805
  5. FLONASE [MOMETASONE FUROATE] [Concomitant]
     Active Substance: MOMETASONE FUROATE
     Dosage: UNK
     Dates: start: 20151212
  6. TESTOSTERONE CYPIONATE. [Concomitant]
     Active Substance: TESTOSTERONE CYPIONATE
     Dosage: UNK
     Dates: start: 201606
  7. K-DUR [Concomitant]
     Active Substance: POTASSIUM CHLORIDE
     Dosage: UNK
     Dates: start: 201806
  8. DEMADEX [Concomitant]
     Active Substance: TORSEMIDE
     Dosage: UNK
     Dates: start: 201806
  9. ALDACTONE 50 HCT [Concomitant]
     Dosage: UNK
     Dates: start: 201806
  10. TAFAMIDIS MEGLUMINE [Suspect]
     Active Substance: TAFAMIDIS MEGLUMINE
     Indication: PRODUCT USED FOR UNKNOWN INDICATION
     Dosage: 16 MG
     Route: 048
     Dates: start: 20190116, end: 20190310
  11. LANTUS [Concomitant]
     Active Substance: INSULIN GLARGINE
     Dosage: UNK
     Dates: start: 20161212
  12. LIPITOR [Concomitant]
     Active Substance: ATORVASTATIN CALCIUM
     Dosage: UNK
     Dates: start: 201612
  13. TRIAMCINOLON COMPO [Concomitant]
     Dosage: UNK
     Dates: start: 20181226

REACTIONS (4)
  - Off label use [Unknown]
  - Product use in unapproved indication [Unknown]
  - Gastrointestinal haemorrhage [Unknown]
  - Labelled drug-drug interaction medication error [None]

NARRATIVE: CASE EVENT DATE: 20090225
